FAERS Safety Report 5369602-2 (Version None)
Quarter: 2007Q2

REPORT INFORMATION
  Report Type: 
  Country: None (occurrence: None)
  Receive Date: 20070621
  Receipt Date: 20070610
  Transmission Date: 20071010
  Serious: Yes (Hospitalization)
  Sender: FDA-Public Use
  Company Number: 2007SP002179

PATIENT
  Age: 60 Year
  Sex: Female
  Weight: 45.8133 kg

DRUGS (16)
  1. XOPENEX [Suspect]
     Indication: ASTHMA
     Dosage: 1.25 MG/3 ML; TID; INHALATION
     Route: 055
     Dates: start: 20031001
  2. XOPENEX [Suspect]
     Indication: BRONCHITIS
     Dosage: 1.25 MG/3 ML; TID; INHALATION
     Route: 055
     Dates: start: 20031001
  3. VANCOMYCIN HCL [Concomitant]
  4. FORMOTEROL FUMARATE [Concomitant]
  5. SYNTHROID [Concomitant]
  6. VYTORIN [Concomitant]
  7. GALANTAMINE HYDROBROMIDE [Concomitant]
  8. TRICOR [Concomitant]
  9. SINGULAIR [Concomitant]
  10. LOPRESSOR [Concomitant]
  11. QUININE SULFATE [Concomitant]
  12. ESTROGENS CONJUGATED [Concomitant]
  13. PLAVIX [Concomitant]
  14. NITROGLICERINA [Concomitant]
  15. XOPENEX HFA INHALATION AEROSOL [Concomitant]
  16. AMBIEN [Concomitant]

REACTIONS (3)
  - ASPERGILLOSIS [None]
  - COCCIDIOIDOMYCOSIS [None]
  - PRURITUS GENERALISED [None]
